FAERS Safety Report 8927548 (Version 2)
Quarter: 2013Q4

REPORT INFORMATION
  Report Type: Spontaneous
  Country: IT (occurrence: IT)
  Receive Date: 20121127
  Receipt Date: 20131127
  Transmission Date: 20140711
  Serious: Yes (Other)
  Sender: FDA-Public Use
  Company Number: IT-PFIZER INC-2012287408

PATIENT
  Age: 62 Year
  Sex: Male

DRUGS (2)
  1. TRIATEC [Suspect]
     Indication: ESSENTIAL HYPERTENSION
     Dosage: 2.5 MG, DAILY
     Route: 048
     Dates: start: 20091015, end: 20120815
  2. LORAZEPAM [Concomitant]
     Dosage: UNK

REACTIONS (3)
  - Lip swelling [Recovered/Resolved]
  - Swollen tongue [Recovered/Resolved]
  - Oedema mouth [Recovered/Resolved]
